FAERS Safety Report 5070983-8 (Version None)
Quarter: 2006Q3

REPORT INFORMATION
  Report Type: 
  Country: None (occurrence: None)
  Receive Date: 20060714
  Receipt Date: 20060425
  Transmission Date: 20061208
  Serious: No
  Sender: FDA-Public Use
  Company Number: 2006SP001830

PATIENT
  Age: 24 Year
  Sex: Female

DRUGS (5)
  1. LUNESTA [Suspect]
     Indication: INSOMNIA
     Dosage: 3 MG; HS; ORAL
     Route: 048
     Dates: start: 20060424
  2. AMBIEN [Concomitant]
  3. LORCET-HD [Concomitant]
  4. DIAZEPAM [Concomitant]
  5. SOMA [Concomitant]

REACTIONS (1)
  - DYSGEUSIA [None]
